FAERS Safety Report 19703912 (Version 1)
Quarter: 2021Q3

REPORT INFORMATION
  Report Type: Spontaneous
  Country: US (occurrence: US)
  Receive Date: 20210813
  Receipt Date: 20210813
  Transmission Date: 20211014
  Serious: Yes (Hospitalization)
  Sender: FDA-Public Use
  Company Number: None

PATIENT
  Age: 47 Year
  Sex: Female
  Weight: 57.6 kg

DRUGS (1)
  1. RITUXAN [Suspect]
     Active Substance: RITUXIMAB
     Indication: PULMONARY FIBROSIS
     Dates: start: 20200323, end: 20210507

REACTIONS (2)
  - Abdominal pain [None]
  - Splenomegaly [None]

NARRATIVE: CASE EVENT DATE: 20210514
